FAERS Safety Report 21926533 (Version 1)
Quarter: 2023Q1

REPORT INFORMATION
  Report Type: Spontaneous
  Country: US (occurrence: US)
  Receive Date: 20230130
  Receipt Date: 20230130
  Transmission Date: 20230418
  Serious: Yes (Death)
  Sender: FDA-Public Use
  Company Number: US-PFIZER INC-202101743243

PATIENT
  Age: 83 Year
  Sex: Male
  Weight: 79.38 kg

DRUGS (1)
  1. VYNDAMAX [Suspect]
     Active Substance: TAFAMIDIS
     Indication: Cardiac amyloidosis
     Dosage: 61 MG IN MOUTH AND SWALLOW WHOLE WITH WATER ONCE A DAY IN THE MORNING
     Route: 048
     Dates: start: 20190813, end: 20230111

REACTIONS (4)
  - Death [Fatal]
  - Expired product administered [Unknown]
  - Poor quality product administered [Unknown]
  - Product lot number issue [Unknown]

NARRATIVE: CASE EVENT DATE: 20211123
